FAERS Safety Report 16683569 (Version 1)
Quarter: 2019Q3

REPORT INFORMATION
  Report Type: Spontaneous
  Country: US (occurrence: US)
  Receive Date: 20190808
  Receipt Date: 20190808
  Transmission Date: 20191004
  Serious: No
  Sender: FDA-Public Use
  Company Number: US-ALLERGAN-1916821US

PATIENT
  Sex: Male
  Weight: 68.93 kg

DRUGS (14)
  1. LANTUS [Concomitant]
     Active Substance: INSULIN GLARGINE
     Indication: DIABETES MELLITUS
     Dosage: 20 UNITS, QHS
  2. ALFLOW [Concomitant]
     Indication: ASTHMA
     Dosage: UNK, QD
     Route: 055
  3. AMLODIPINE [Concomitant]
     Active Substance: AMLODIPINE BESYLATE
     Indication: HYPERTENSION
     Dosage: 5 MG, QD
     Route: 048
  4. MONTELUKAST [Concomitant]
     Active Substance: MONTELUKAST SODIUM
     Indication: ASTHMA
  5. ANDRODERM [Suspect]
     Active Substance: TESTOSTERONE
     Indication: BLOOD TESTOSTERONE DECREASED
     Dosage: 1 DF, QD
     Route: 062
     Dates: start: 201903, end: 20190416
  6. CRESTOR [Concomitant]
     Active Substance: ROSUVASTATIN CALCIUM
     Indication: BLOOD CHOLESTEROL INCREASED
     Dosage: 40 MG, QD
     Route: 048
  7. METFORMIN [Concomitant]
     Active Substance: METFORMIN HYDROCHLORIDE
     Indication: DIABETES MELLITUS
     Dosage: 1000 MG, QD
     Route: 048
  8. BACLOFEN. [Concomitant]
     Active Substance: BACLOFEN
     Indication: NERVE INJURY
     Dosage: 20 MG, BID
     Route: 048
  9. MONTELUKAST [Concomitant]
     Active Substance: MONTELUKAST SODIUM
     Indication: SNORING
     Dosage: 10 MG, QD
     Route: 048
  10. CLONOPRIL [Concomitant]
     Indication: HYPERTENSION
     Dosage: 40 MG, QD
     Route: 048
  11. JUVENA [Concomitant]
     Indication: DIABETES MELLITUS
     Dosage: 50 MG, QD
     Route: 048
  12. PLAVIX [Concomitant]
     Active Substance: CLOPIDOGREL BISULFATE
     Indication: ARTERIAL OCCLUSIVE DISEASE
     Dosage: UNK
  13. ALFLOW [Concomitant]
     Indication: SNORING
  14. UNSPECIFIED VITAMINS [Concomitant]
     Active Substance: VITAMINS
     Dosage: UNK

REACTIONS (4)
  - Application site pruritus [Recovered/Resolved]
  - Application site hypersensitivity [Recovered/Resolved]
  - Application site mass [Recovered/Resolved]
  - Application site vesicles [Recovered/Resolved]
